FAERS Safety Report 25330803 (Version 1)
Quarter: 2025Q2

REPORT INFORMATION
  Report Type: Report from Study
  Country: US (occurrence: US)
  Receive Date: 20250519
  Receipt Date: 20250519
  Transmission Date: 20250716
  Serious: Yes (Other)
  Sender: MYLAN
  Company Number: US-MYLANLABS-2025M1041630

PATIENT
  Age: 58 Year
  Sex: Female

DRUGS (18)
  1. ACETAZOLAMIDE [Suspect]
     Active Substance: ACETAZOLAMIDE
     Indication: Hereditary ataxia
  2. GABAPENTIN [Suspect]
     Active Substance: GABAPENTIN
     Indication: Hereditary ataxia
  3. MIRTAZAPINE [Suspect]
     Active Substance: MIRTAZAPINE
     Indication: Hereditary ataxia
  4. PANTOPRAZOLE [Suspect]
     Active Substance: PANTOPRAZOLE
     Indication: Hereditary ataxia
  5. CARBIDOPA\LEVODOPA [Suspect]
     Active Substance: CARBIDOPA\LEVODOPA
     Indication: Hereditary ataxia
  6. MECLIZINE [Suspect]
     Active Substance: MECLIZINE HYDROCHLORIDE
     Indication: Hereditary ataxia
  7. DALFAMPRIDINE [Suspect]
     Active Substance: DALFAMPRIDINE
     Indication: Hereditary ataxia
  8. BACLOFEN [Suspect]
     Active Substance: BACLOFEN
     Indication: Hereditary ataxia
  9. RILUZOLE [Suspect]
     Active Substance: RILUZOLE
     Indication: Hereditary ataxia
  10. AMANTADINE [Suspect]
     Active Substance: AMANTADINE
     Indication: Hereditary ataxia
  11. ACETYLLEUCINE [Suspect]
     Active Substance: ACETYLLEUCINE
     Indication: Hereditary ataxia
  12. MODAFINIL [Suspect]
     Active Substance: MODAFINIL
     Indication: Hereditary ataxia
  13. COENZYME Q10 [Suspect]
     Active Substance: DIETARY SUPPLEMENT\UBIDECARENONE
     Indication: Hereditary ataxia
  14. IMMUNE GLOBULIN NOS [Suspect]
     Active Substance: IMMUNE GLOBULIN NOS
     Indication: Hereditary ataxia
  15. BOTULINUM TOXIN NOS [Concomitant]
     Active Substance: BOTULINUM TOXIN NOS
     Indication: Back pain
  16. VORTIOXETINE [Concomitant]
     Active Substance: VORTIOXETINE
     Indication: Hereditary ataxia
  17. ROSUVASTATIN [Concomitant]
     Active Substance: ROSUVASTATIN
     Indication: Hereditary ataxia
  18. ONDANSETRON [Concomitant]
     Active Substance: ONDANSETRON
     Indication: Hereditary ataxia

REACTIONS (2)
  - Drug ineffective for unapproved indication [Unknown]
  - Off label use [Unknown]
